FAERS Safety Report 8459697-1 (Version None)
Quarter: 2012Q2

REPORT INFORMATION
  Report Type: 
  Country: None (occurrence: None)
  Receive Date: 20120622
  Receipt Date: 20120620
  Transmission Date: 20120825
  Serious: Yes (Death)
  Sender: FDA-Public Use
  Company Number: US-B.I. PHARMACEUTICALS,INC./RIDGEFIELD-2012-BP-13168BP

PATIENT
  Age: 63 Year
  Sex: Female

DRUGS (7)
  1. HYDRALAZINE HYDROCHLORIDE [Concomitant]
  2. OXYCODONE HCL [Concomitant]
  3. LOVASTATIN [Concomitant]
  4. ATENOLOL [Concomitant]
     Indication: HYPERTENSION
  5. SULFAMETHOXAZOLE AND TRIMETHOPRIM DOUBLE STRENGTH [Concomitant]
  6. PRADAXA [Suspect]
     Indication: CEREBROVASCULAR ACCIDENT PROPHYLAXIS
  7. AMOXICILLIN AND CLAVULANATE POTASSIUM [Concomitant]

REACTIONS (1)
  - MYOCARDIAL INFARCTION [None]
